FAERS Safety Report 7532411-X (Version None)
Quarter: 2011Q2

REPORT INFORMATION
  Report Type: 
  Country: None (occurrence: None)
  Receive Date: 20110601
  Receipt Date: 20110517
  Transmission Date: 20111010
  Serious: Yes (Other)
  Sender: FDA-Public Use
  Company Number: AUR-APL-2011-01783

PATIENT
  Age: 18 Year
  Sex: Female
  Weight: 95.24 kg

DRUGS (4)
  1. TRAZODONE HCL [Concomitant]
  2. FINASTERIDE [Suspect]
  3. CITALOPRAM HYDROBROMIDE [Suspect]
     Indication: ANXIETY
     Dosage: 3 TABLETS - DAILY
  4. CITALOPRAM HYDROBROMIDE [Suspect]
     Indication: DEPRESSION
     Dosage: 3 TABLETS - DAILY

REACTIONS (4)
  - PRODUCT QUALITY ISSUE [None]
  - SCAR [None]
  - RASH [None]
  - ACNE [None]
